FAERS Safety Report 6137669-X (Version None)
Quarter: 2009Q1

REPORT INFORMATION
  Report Type: 
  Country: None (occurrence: None)
  Receive Date: 20090327
  Receipt Date: 20090313
  Transmission Date: 20090719
  Serious: Yes (Hospitalization, Other)
  Sender: FDA-Public Use
  Company Number: 2009PL000112

PATIENT
  Age: 8 Day
  Sex: Female
  Weight: 0.64 kg

DRUGS (1)
  1. TRANDATE [Suspect]
     Dosage: 100 MG/KG; QD; PO
     Route: 048

REACTIONS (4)
  - DRUG EXPOSURE VIA BREAST MILK [None]
  - NEONATAL DISORDER [None]
  - SINUS BRADYCARDIA [None]
  - SUPRAVENTRICULAR EXTRASYSTOLES [None]
